FAERS Safety Report 13250244 (Version 2)
Quarter: 2017Q1

REPORT INFORMATION
  Report Type: Spontaneous
  Country: GB (occurrence: GB)
  Receive Date: 20170218
  Receipt Date: 20170310
  Transmission Date: 20170428
  Serious: Yes (Hospitalization, Other)
  Sender: FDA-Public Use
  Company Number: GB-AMGEN-GBRSP2017011675

PATIENT
  Age: 90 Year
  Sex: Female
  Weight: 64 kg

DRUGS (8)
  1. ATENOLOL. [Concomitant]
     Active Substance: ATENOLOL
     Indication: BLOOD PRESSURE MANAGEMENT
     Dosage: 50 MG, 1X/DAY
  2. LORATADINE. [Concomitant]
     Active Substance: LORATADINE
     Indication: RASH
     Dosage: UNK
  3. ENBREL [Suspect]
     Active Substance: ETANERCEPT
     Indication: RHEUMATOID ARTHRITIS
     Dosage: 50 MG, WEEKLY
     Route: 058
     Dates: start: 201507, end: 201611
  4. AMLODIPINE [Concomitant]
     Active Substance: AMLODIPINE BESYLATE
     Indication: BLOOD PRESSURE MANAGEMENT
     Dosage: 5 MG, 1X/DAY
  5. CALCICHEW D3 FORTE [Concomitant]
     Active Substance: CALCIUM\CHOLECALCIFEROL
     Dosage: UNK UNK, 2X/DAY
  6. LOSARTAN. [Concomitant]
     Active Substance: LOSARTAN
     Indication: BLOOD PRESSURE MEASUREMENT
     Dosage: 100 MG, 1X/DAY
     Route: 048
  7. IRON [Concomitant]
     Active Substance: IRON
     Dosage: UNK
  8. OMEPRAZOLE. [Concomitant]
     Active Substance: OMEPRAZOLE
     Dosage: 20 MG, 2X/DAY

REACTIONS (4)
  - Rash [Unknown]
  - Liver function test abnormal [Recovered/Resolved]
  - Malaise [Unknown]
  - Pruritus [Recovered/Resolved]

NARRATIVE: CASE EVENT DATE: 201611
